FAERS Safety Report 8521953-6 (Version None)
Quarter: 2012Q3

REPORT INFORMATION
  Report Type: 
  Country: None (occurrence: None)
  Receive Date: 20120719
  Receipt Date: 20120618
  Transmission Date: 20120928
  Serious: No
  Sender: FDA-Public Use
  Company Number: US-BRISTOL-MYERS SQUIBB COMPANY-16691966

PATIENT
  Age: 59 Year
  Sex: Male

DRUGS (2)
  1. YERVOY [Suspect]
  2. TESTOSTERONE [Suspect]
     Dosage: PATCH

REACTIONS (2)
  - ERYTHEMA [None]
  - SKIN IRRITATION [None]
